FAERS Safety Report 4530761-2 (Version None)
Quarter: 2004Q4

REPORT INFORMATION
  Report Type: 
  Country: None (occurrence: None)
  Receive Date: 20041129
  Receipt Date: 20040609
  Transmission Date: 20050328
  Serious: Yes (Hospitalization)
  Sender: FDA-Public Use
  Company Number: USA040669737

PATIENT
  Age: 70 Year
  Sex: Female
  Weight: 91 kg

DRUGS (3)
  1. ZYPREXA [Suspect]
     Dosage: 5 MG
  2. TRAZADONE (TRAZODONE) [Concomitant]
  3. FLONASE [Concomitant]

REACTIONS (2)
  - DIABETES MELLITUS [None]
  - NERVOUSNESS [None]
